FAERS Safety Report 15546929 (Version 1)
Quarter: 2018Q4

REPORT INFORMATION
  Report Type: Spontaneous
  Country: US (occurrence: US)
  Receive Date: 20181024
  Receipt Date: 20181024
  Transmission Date: 20190205
  Serious: No
  Sender: FDA-Public Use
  Company Number: None

PATIENT
  Age: 46 Year
  Sex: Female
  Weight: 67.59 kg

DRUGS (2)
  1. INVEGA [Suspect]
     Active Substance: PALIPERIDONE
     Indication: SCHIZOPHRENIA
     Route: 048
     Dates: start: 20180919, end: 20181014
  2. INVEGA [Concomitant]
     Active Substance: PALIPERIDONE
     Dates: start: 20180620, end: 20180918

REACTIONS (3)
  - Psychotic disorder [None]
  - Feeling abnormal [None]
  - Treatment failure [None]

NARRATIVE: CASE EVENT DATE: 20180919
